FAERS Safety Report 7188086-5 (Version None)
Quarter: 2010Q4

REPORT INFORMATION
  Report Type: 
  Country: None (occurrence: None)
  Receive Date: 20101222
  Receipt Date: 20100707
  Transmission Date: 20110411
  Serious: No
  Sender: FDA-Public Use
  Company Number: US-AMGEN-KDL423147

PATIENT

DRUGS (2)
  1. ENBREL [Suspect]
     Indication: RHEUMATOID ARTHRITIS
     Dosage: 50 MG, QWK
     Route: 058
     Dates: start: 20050610
  2. AZATHIOPRINE [Concomitant]
     Dosage: 100 MG, QD
     Route: 048

REACTIONS (3)
  - DRY MOUTH [None]
  - PAIN [None]
  - SINUSITIS [None]
